FAERS Safety Report 23927887 (Version 1)
Quarter: 2024Q2

REPORT INFORMATION
  Report Type: Spontaneous
  Country: US (occurrence: US)
  Receive Date: 20240531
  Receipt Date: 20240531
  Transmission Date: 20240716
  Serious: No
  Sender: FDA-Public Use
  Company Number: US-RADIUS HEALTH INC.-2023US004142

PATIENT
  Sex: Female
  Weight: 57.188 kg

DRUGS (4)
  1. TYMLOS [Suspect]
     Active Substance: ABALOPARATIDE
     Indication: Senile osteoporosis
     Dosage: 80 MICROGRAM, QD
     Route: 058
     Dates: start: 202306
  2. CALCIUM\VITAMIN D [Concomitant]
     Active Substance: CALCIUM\VITAMIN D
     Indication: Product used for unknown indication
  3. BLACKBERRY FES [Concomitant]
     Indication: Product used for unknown indication
  4. ECHINACEA [ECHINACEA SPP.] [Concomitant]
     Indication: Product used for unknown indication

REACTIONS (4)
  - Upper respiratory tract infection [Unknown]
  - Cough [Unknown]
  - Abdominal discomfort [Unknown]
  - Palpitations [Unknown]
